FAERS Safety Report 4984619-5 (Version None)
Quarter: 2006Q2

REPORT INFORMATION
  Report Type: 
  Country: None (occurrence: None)
  Receive Date: 20060427
  Receipt Date: 20050912
  Transmission Date: 20061013
  Serious: Yes (Hospitalization)
  Sender: FDA-Public Use
  Company Number: US-MERCK-0509USA01571

PATIENT
  Age: 66 Year
  Sex: Male
  Weight: 86 kg

DRUGS (12)
  1. VIOXX [Suspect]
     Indication: ARTHRALGIA
     Route: 048
     Dates: start: 20000101, end: 20040101
  2. VIOXX [Suspect]
     Route: 048
     Dates: start: 20000101, end: 20040101
  3. FLOMAX [Concomitant]
     Route: 065
  4. ACCUPRIL [Concomitant]
     Route: 065
  5. VITAMINS (UNSPECIFIED) [Concomitant]
     Route: 048
  6. GLUCOTROL [Concomitant]
     Route: 065
  7. CASODEX [Concomitant]
     Route: 065
  8. NORVASC [Concomitant]
     Route: 065
  9. VIOXX [Suspect]
     Indication: BACK PAIN
     Route: 048
     Dates: start: 20000101, end: 20040101
  10. VIOXX [Suspect]
     Route: 048
     Dates: start: 20000101, end: 20040101
  11. VIOXX [Suspect]
     Route: 048
     Dates: start: 20000101, end: 20040101
  12. VIOXX [Suspect]
     Route: 048
     Dates: start: 20000101, end: 20040101

REACTIONS (10)
  - ANAEMIA [None]
  - BACK INJURY [None]
  - CEREBROVASCULAR ACCIDENT [None]
  - CERVICAL MYELOPATHY [None]
  - DIZZINESS [None]
  - HYPOAESTHESIA [None]
  - PRESCRIBED OVERDOSE [None]
  - PROSTATE CANCER [None]
  - SINUS POLYP [None]
  - SPINAL OSTEOARTHRITIS [None]
